FAERS Safety Report 21169304 (Version 2)
Quarter: 2024Q1

REPORT INFORMATION
  Report Type: Spontaneous
  Country: US (occurrence: US)
  Receive Date: 20220804
  Receipt Date: 20240315
  Transmission Date: 20240410
  Serious: Yes (Hospitalization)
  Sender: FDA-Public Use
  Company Number: US-UNITED THERAPEUTICS-UNT-2022-016017

PATIENT
  Age: 50 Year
  Sex: Female
  Weight: 81.633 kg

DRUGS (18)
  1. TYVASO [Suspect]
     Active Substance: TREPROSTINIL
     Indication: Pulmonary arterial hypertension
     Dosage: 54 ?G, QID
  2. TYVASO [Suspect]
     Active Substance: TREPROSTINIL
     Dosage: 18 ?G, QID
  3. TYVASO [Suspect]
     Active Substance: TREPROSTINIL
     Dosage: UNK
     Dates: start: 20211014, end: 202207
  4. UPTRAVI [Suspect]
     Active Substance: SELEXIPAG
     Indication: Pulmonary arterial hypertension
     Dosage: 200 ?G, BID
     Route: 048
  5. UPTRAVI [Suspect]
     Active Substance: SELEXIPAG
     Dosage: 1200 ?G, BID
     Route: 048
  6. UPTRAVI [Suspect]
     Active Substance: SELEXIPAG
     Dosage: 1600 ?G, BID
     Route: 048
  7. UPTRAVI [Suspect]
     Active Substance: SELEXIPAG
     Dosage: UNK
     Route: 048
     Dates: start: 202207
  8. OFEV [Suspect]
     Active Substance: NINTEDANIB
     Indication: Idiopathic pulmonary fibrosis
     Dosage: 150 MG, BID
     Route: 048
  9. OFEV [Suspect]
     Active Substance: NINTEDANIB
     Indication: Interstitial lung disease
     Dosage: UNK
     Route: 048
     Dates: start: 20220402
  10. OFEV [Suspect]
     Active Substance: NINTEDANIB
     Indication: Pulmonary arterial hypertension
     Dosage: UNK
     Route: 048
  11. OFEV [Suspect]
     Active Substance: NINTEDANIB
     Dosage: UNK
     Route: 048
  12. OFEV [Suspect]
     Active Substance: NINTEDANIB
     Dosage: UNK
     Route: 048
  13. OFEV [Suspect]
     Active Substance: NINTEDANIB
     Dosage: UNK
     Route: 048
  14. OFEV [Suspect]
     Active Substance: NINTEDANIB
     Dosage: UNK
     Route: 048
  15. OFEV [Suspect]
     Active Substance: NINTEDANIB
     Dosage: UNK
     Route: 048
  16. OFEV [Suspect]
     Active Substance: NINTEDANIB
     Dosage: UNK
     Route: 048
  17. OPSUMIT [Concomitant]
     Active Substance: MACITENTAN
     Indication: Product used for unknown indication
     Dosage: UNK
     Route: 065
  18. TADALAFIL [Concomitant]
     Active Substance: TADALAFIL
     Indication: Product used for unknown indication
     Dosage: UNK
     Route: 065

REACTIONS (5)
  - Palpitations [Unknown]
  - Weight increased [Unknown]
  - Infection [Unknown]
  - Diarrhoea [Not Recovered/Not Resolved]
  - Drug titration error [Unknown]

NARRATIVE: CASE EVENT DATE: 20220712
